FAERS Safety Report 12612810 (Version 8)
Quarter: 2017Q3

REPORT INFORMATION
  Report Type: Report from Study
  Country: US (occurrence: US)
  Receive Date: 20160801
  Receipt Date: 20170908
  Transmission Date: 20171127
  Serious: Yes (Hospitalization, Other)
  Sender: FDA-Public Use
  Company Number: US-AMGEN-USASL2016097804

PATIENT
  Age: 74 Year
  Sex: Female

DRUGS (8)
  1. ENBREL [Suspect]
     Active Substance: ETANERCEPT
     Indication: RHEUMATOID ARTHRITIS
     Dosage: UNK
     Route: 065
     Dates: start: 1999
  2. ENBREL [Suspect]
     Active Substance: ETANERCEPT
     Dosage: UNK
     Route: 065
  3. ENBREL [Suspect]
     Active Substance: ETANERCEPT
     Dosage: 25 MG, 2 TIMES/WK
     Route: 065
  4. MTX [Concomitant]
     Active Substance: METHOTREXATE SODIUM
     Indication: PRODUCT USED FOR UNKNOWN INDICATION
     Dosage: UNK
     Route: 065
     Dates: end: 201702
  5. ENBREL [Suspect]
     Active Substance: ETANERCEPT
     Dosage: 25 MG, 2 TIMES/WK
     Route: 065
  6. PREDNISONE. [Concomitant]
     Active Substance: PREDNISONE
     Dosage: UNK
  7. VITAMIN D [Concomitant]
     Active Substance: CHOLECALCIFEROL
     Indication: OSTEOPOROSIS
     Dosage: UNK
     Route: 065
  8. METHIMAZOLE. [Concomitant]
     Active Substance: METHIMAZOLE
     Dosage: UNK

REACTIONS (21)
  - Hyperthyroidism [Unknown]
  - Arthritis [Unknown]
  - Feeling abnormal [Unknown]
  - Fall [Unknown]
  - Infection susceptibility increased [Unknown]
  - Back pain [Unknown]
  - Pain [Not Recovered/Not Resolved]
  - Arthralgia [Unknown]
  - Musculoskeletal pain [Unknown]
  - Osteoporosis [Unknown]
  - Pain in extremity [Unknown]
  - Injection site pain [Unknown]
  - Hip fracture [Unknown]
  - Lower limb fracture [Unknown]
  - Drug ineffective [Unknown]
  - Limb deformity [Unknown]
  - Vitamin D decreased [Not Recovered/Not Resolved]
  - Product storage error [Unknown]
  - Rheumatoid arthritis [Recovering/Resolving]
  - Intentional product misuse [Unknown]
  - Walking aid user [Unknown]

NARRATIVE: CASE EVENT DATE: 2009
